FAERS Safety Report 20894683 (Version 2)
Quarter: 2022Q2

REPORT INFORMATION
  Report Type: Spontaneous
  Country: JP (occurrence: JP)
  Receive Date: 20220531
  Receipt Date: 20220608
  Transmission Date: 20220721
  Serious: Yes (Other)
  Sender: FDA-Public Use
  Company Number: JP-MLMSERVICE-20220518-3565528-1

PATIENT
  Age: 13 Year
  Sex: Male

DRUGS (6)
  1. METHYLPREDNISOLONE SODIUM SUCCINATE [Suspect]
     Active Substance: METHYLPREDNISOLONE SODIUM SUCCINATE
     Indication: Glomerulonephritis membranoproliferative
     Dosage: FREQ:3 {CYCLICAL};PULSE THERAPY (1 MG/KG FOR 3 CONSECUTIVE DAYS ONCE A WEEK, THREE COURSES)
  2. PREDNISOLONE [Suspect]
     Active Substance: PREDNISOLONE
     Indication: Glomerulonephritis membranoproliferative
     Dosage: 40 MG, ALTERNATE DAY
     Route: 048
  3. PREDNISOLONE [Suspect]
     Active Substance: PREDNISOLONE
     Dosage: 20 MG, ALTERNATE DAY
     Route: 048
  4. ALENDRONIC ACID [Suspect]
     Active Substance: ALENDRONIC ACID
     Indication: Glomerulonephritis membranoproliferative
     Dosage: 35 MG, WEEKLY
     Route: 048
  5. MYCOPHENOLATE MOFETIL [Concomitant]
     Active Substance: MYCOPHENOLATE MOFETIL
     Indication: Glomerulonephritis membranoproliferative
     Dosage: 1000 MG/24H
  6. MYCOPHENOLATE MOFETIL [Concomitant]
     Active Substance: MYCOPHENOLATE MOFETIL
     Dosage: FREQ:24 H;STARTED AT AGE 12, AND TERMINATED AT AGE 16

REACTIONS (6)
  - Thoracic vertebral fracture [Recovering/Resolving]
  - Osteochondrosis [Recovering/Resolving]
  - Osteosclerosis [Recovering/Resolving]
  - Stress fracture [Recovering/Resolving]
  - Spondylolysis [Recovering/Resolving]
  - Foot fracture [Recovered/Resolved]
